FAERS Safety Report 5027311-3 (Version None)
Quarter: 2006Q2

REPORT INFORMATION
  Report Type: 
  Country: None (occurrence: None)
  Receive Date: 20060501
  Receipt Date: 20060213
  Transmission Date: 20061013
  Serious: No
  Sender: FDA-Public Use
  Company Number: 2006PV008662

PATIENT
  Age: 64 Year
  Sex: Female
  Weight: 91.6266 kg

DRUGS (9)
  1. SYMLIN INJECTION (0.6 MG/ML) [Suspect]
     Indication: DIABETES MELLITUS NON-INSULIN-DEPENDENT
     Dosage: 90 MCG; TID; SC;  60 MCG; TID; SC
     Route: 058
     Dates: start: 20060124, end: 20060101
  2. SYMLIN INJECTION (0.6 MG/ML) [Suspect]
     Indication: DIABETES MELLITUS NON-INSULIN-DEPENDENT
     Dosage: 90 MCG; TID; SC;  60 MCG; TID; SC
     Route: 058
     Dates: start: 20060101
  3. PROTOPIC [Suspect]
     Indication: RASH
     Dates: start: 20060210
  4. HUMALIN [Concomitant]
  5. LANTUS [Concomitant]
  6. AVELIDE [Concomitant]
  7. SYNTHROID [Concomitant]
  8. METFORMIN [Concomitant]
  9. TOPAMAX [Concomitant]

REACTIONS (4)
  - FACE OEDEMA [None]
  - JAUNDICE [None]
  - OCULAR ICTERUS [None]
  - YELLOW SKIN [None]
